FAERS Safety Report 17276830 (Version 6)
Quarter: 2023Q2

REPORT INFORMATION
  Report Type: Spontaneous
  Country: US (occurrence: US)
  Receive Date: 20200116
  Receipt Date: 20230628
  Transmission Date: 20230721
  Serious: Yes (Other)
  Sender: FDA-Public Use
  Company Number: US-PFIZER INC-2020019113

PATIENT
  Age: 85 Year
  Sex: Male
  Weight: 76.19 kg

DRUGS (3)
  1. VYNDAMAX [Suspect]
     Active Substance: TAFAMIDIS
     Indication: Amyloidosis
     Dosage: 61 MG, UNK
  2. VYNDAMAX [Suspect]
     Active Substance: TAFAMIDIS
     Dosage: 20 MG, 1X/DAY
     Dates: start: 20200214
  3. VYNDAMAX [Suspect]
     Active Substance: TAFAMIDIS
     Dosage: 1 AT 8 OCLOCK AT EVERY DAY, 61MG

REACTIONS (3)
  - Prostate cancer [Unknown]
  - Diarrhoea [Recovering/Resolving]
  - Off label use [Unknown]

NARRATIVE: CASE EVENT DATE: 20200214
